FAERS Safety Report 14412349 (Version 2)
Quarter: 2018Q3

REPORT INFORMATION
  Report Type: Spontaneous
  Country: GB (occurrence: GB)
  Receive Date: 20180119
  Receipt Date: 20180717
  Transmission Date: 20181010
  Serious: Yes (Other)
  Sender: FDA-Public Use
  Company Number: PHHY2017GB198765

PATIENT
  Age: 45 Year
  Sex: Female

DRUGS (2)
  1. ACETYLSALICYLIC ACID [Suspect]
     Active Substance: ASPIRIN
     Dosage: UNK
     Route: 065
  2. ACETYLSALICYLIC ACID [Suspect]
     Active Substance: ASPIRIN
     Indication: PROPHYLAXIS

REACTIONS (7)
  - Eclampsia [Unknown]
  - Premature delivery [Unknown]
  - Cerebral haemorrhage [Recovered/Resolved]
  - Exposure during pregnancy [Unknown]
  - Femoral neck fracture [Unknown]
  - Hypertension [Unknown]
  - Osteopenia [Unknown]
